FAERS Safety Report 4851900-X (Version None)
Quarter: 2005Q4

REPORT INFORMATION
  Report Type: 
  Country: None (occurrence: None)
  Receive Date: 20051213
  Receipt Date: 20031217
  Transmission Date: 20060501
  Serious: Yes (Other)
  Sender: FDA-Public Use
  Company Number: 200311525JP

PATIENT
  Age: 74 Year
  Sex: Female

DRUGS (17)
  1. ARAVA [Suspect]
     Indication: RHEUMATOID ARTHRITIS
     Route: 048
     Dates: start: 20031119, end: 20031121
  2. ARAVA [Suspect]
     Route: 048
     Dates: start: 20031122, end: 20031202
  3. METHOTREXATE [Concomitant]
     Indication: RHEUMATOID ARTHRITIS
     Dosage: DOSE: 6MG/WEEK
     Route: 048
     Dates: end: 20031118
  4. METHOTREXATE [Concomitant]
     Dates: start: 20031105
  5. FOLIAMIN [Concomitant]
     Indication: RHEUMATOID ARTHRITIS
     Dosage: DOSE: 5MG/WEEK
     Route: 048
     Dates: end: 20031118
  6. PREDONINE [Concomitant]
     Indication: RHEUMATOID ARTHRITIS
     Route: 048
  7. CINAL [Concomitant]
     Indication: RHEUMATOID ARTHRITIS
     Route: 048
  8. AZULFIDINE [Concomitant]
     Indication: RHEUMATOID ARTHRITIS
     Route: 048
     Dates: end: 20031118
  9. INTEBAN [Concomitant]
     Indication: RHEUMATOID ARTHRITIS
     Route: 048
     Dates: end: 20031202
  10. APLACE [Concomitant]
     Indication: GASTRITIS
     Route: 048
     Dates: end: 20031218
  11. APLACE [Concomitant]
     Indication: PROPHYLAXIS
     Route: 048
     Dates: end: 20031218
  12. CHINESE HERBAL MEDICINE [Concomitant]
     Indication: RHEUMATOID ARTHRITIS
     Route: 048
     Dates: start: 20031105, end: 20031118
  13. TAGAMET [Concomitant]
     Route: 048
  14. PURSENNID [Concomitant]
     Route: 048
  15. LIMETHASON [Concomitant]
     Indication: RHEUMATOID ARTHRITIS
     Route: 042
     Dates: start: 20031018
  16. KENACORT-A [Concomitant]
     Indication: RHEUMATOID ARTHRITIS
     Route: 062
  17. XYLOCAINE [Concomitant]
     Indication: RHEUMATOID ARTHRITIS

REACTIONS (3)
  - ALANINE AMINOTRANSFERASE INCREASED [None]
  - BLOOD ALKALINE PHOSPHATASE INCREASED [None]
  - GAMMA-GLUTAMYLTRANSFERASE INCREASED [None]
